FAERS Safety Report 18377073 (Version 1)
Quarter: 2020Q4

REPORT INFORMATION
  Report Type: Spontaneous
  Country: US (occurrence: US)
  Receive Date: 20201013
  Receipt Date: 20201013
  Transmission Date: 20210114
  Serious: Yes (Other)
  Sender: FDA-Public Use
  Company Number: US-MYLANLABS-2020M1086019

PATIENT
  Age: 76 Year
  Sex: Female

DRUGS (16)
  1. FLUOROURACIL. [Suspect]
     Active Substance: FLUOROURACIL
     Indication: DUCTAL ADENOCARCINOMA OF PANCREAS
     Dosage: PART OF SYSTEMIC PALLIATIVE CHEMOTHERAPY FOLFIRINOX
     Route: 065
  2. FOLINIC ACID [Suspect]
     Active Substance: LEUCOVORIN
     Indication: METASTASES TO PELVIS
  3. ERLOTINIB [Suspect]
     Active Substance: ERLOTINIB
     Indication: METASTASES TO PELVIS
  4. GEMCITABINE. [Suspect]
     Active Substance: GEMCITABINE
     Indication: METASTASES TO PELVIS
  5. OSIMERTINIB. [Suspect]
     Active Substance: OSIMERTINIB
     Indication: METASTASES TO PELVIS
  6. OXALIPLATIN. [Suspect]
     Active Substance: OXALIPLATIN
     Indication: DUCTAL ADENOCARCINOMA OF PANCREAS
     Dosage: PART OF SYSTEMIC PALLIATIVE CHEMOTHERAPY FOLFIRINOX
     Route: 065
  7. PACLITAXEL. [Suspect]
     Active Substance: PACLITAXEL
     Indication: DUCTAL ADENOCARCINOMA OF PANCREAS
     Route: 065
  8. PACLITAXEL. [Suspect]
     Active Substance: PACLITAXEL
     Indication: METASTASES TO PELVIS
  9. FLUOROURACIL. [Suspect]
     Active Substance: FLUOROURACIL
     Indication: METASTASES TO PELVIS
  10. GEMCITABINE. [Suspect]
     Active Substance: GEMCITABINE
     Indication: DUCTAL ADENOCARCINOMA OF PANCREAS
     Dosage: UNK
     Route: 065
  11. ERLOTINIB [Suspect]
     Active Substance: ERLOTINIB
     Indication: DUCTAL ADENOCARCINOMA OF PANCREAS
     Dosage: 75 MILLIGRAM, QD
     Route: 065
  12. IRINOTECAN [Suspect]
     Active Substance: IRINOTECAN
     Indication: METASTASES TO PELVIS
  13. OSIMERTINIB. [Suspect]
     Active Substance: OSIMERTINIB
     Indication: DUCTAL ADENOCARCINOMA OF PANCREAS
     Dosage: 80 MILLIGRAM, QD
     Route: 065
  14. FOLINIC ACID [Suspect]
     Active Substance: LEUCOVORIN
     Indication: DUCTAL ADENOCARCINOMA OF PANCREAS
     Dosage: PART OF SYSTEMIC PALLIATIVE CHEMOTHERAPY FOLFIRINOX
     Route: 065
  15. IRINOTECAN [Suspect]
     Active Substance: IRINOTECAN
     Indication: DUCTAL ADENOCARCINOMA OF PANCREAS
     Dosage: PART OF SYSTEMIC PALLIATIVE CHEMOTHERAPY FOLFIRINOX
     Route: 065
  16. OXALIPLATIN. [Suspect]
     Active Substance: OXALIPLATIN
     Indication: METASTASES TO PELVIS

REACTIONS (4)
  - Diarrhoea [Unknown]
  - Thrombocytopenia [Unknown]
  - Drug resistance [Unknown]
  - Myelosuppression [Unknown]
